FAERS Safety Report 14232297 (Version 1)
Quarter: 2017Q4

REPORT INFORMATION
  Report Type: Report from Study
  Country: IT (occurrence: IT)
  Receive Date: 20171128
  Receipt Date: 20171128
  Transmission Date: 20180321
  Serious: Yes (Hospitalization, Other)
  Sender: FDA-Public Use
  Company Number: PHHY2017IT136427

PATIENT
  Age: 72 Year
  Sex: Female
  Weight: 155 kg

DRUGS (7)
  1. MIDOSTAURIN [Suspect]
     Active Substance: MIDOSTAURIN
     Indication: SYSTEMIC MASTOCYTOSIS
     Dosage: 250 MG, UNK
     Route: 048
     Dates: start: 20170724
  2. MIDOSTAURIN [Suspect]
     Active Substance: MIDOSTAURIN
     Dosage: 200 MG, UNK
     Route: 048
  3. LISINOPRIL. [Concomitant]
     Active Substance: LISINOPRIL
     Indication: HYPERTENSION
     Route: 065
  4. MIDOSTAURIN [Suspect]
     Active Substance: MIDOSTAURIN
     Dosage: 150 MG, UNK
     Route: 048
     Dates: start: 20170726, end: 20170917
  5. RANITIDINE. [Concomitant]
     Active Substance: RANITIDINE
     Indication: MASTOCYTOSIS
     Dosage: 300 MG, UNK
     Route: 065
     Dates: start: 20170724
  6. PREDNISONE. [Concomitant]
     Active Substance: PREDNISONE
     Indication: PRODUCT USED FOR UNKNOWN INDICATION
     Dosage: 12.5 MG, UNK
     Route: 065
     Dates: start: 20170724
  7. METOPROLOL. [Concomitant]
     Active Substance: METOPROLOL
     Indication: ISCHAEMIC CARDIOMYOPATHY
     Dosage: 100 MG, UNK
     Route: 065

REACTIONS (6)
  - Nausea [Unknown]
  - Pneumocystis jirovecii infection [Recovered/Resolved]
  - Diarrhoea [Unknown]
  - Vomiting [Unknown]
  - Pneumonitis [Recovered/Resolved]
  - Pyrexia [Unknown]

NARRATIVE: CASE EVENT DATE: 20170913
